FAERS Safety Report 10011657 (Version 3)
Quarter: 2014Q2

REPORT INFORMATION
  Report Type: Spontaneous
  Country: JP (occurrence: JP)
  Receive Date: 20140314
  Receipt Date: 20140422
  Transmission Date: 20141212
  Serious: Yes (Other)
  Sender: FDA-Public Use
  Company Number: PHHY2014JP030834

PATIENT
  Age: 62 Year
  Sex: Male

DRUGS (7)
  1. RADIATION [Suspect]
  2. ANTITHYMOCYTE IMMUNOGLOBULIN [Suspect]
  3. GLIVEC [Suspect]
     Indication: CHRONIC MYELOID LEUKAEMIA
     Dosage: 400 MG, DAILY
     Route: 048
     Dates: start: 20080707, end: 20090802
  4. TASIGNA [Suspect]
     Indication: CHRONIC MYELOID LEUKAEMIA
     Dosage: 800 MG, DAILY
     Route: 048
     Dates: start: 20090803, end: 20091115
  5. FLUDARABINE [Suspect]
  6. MELPHALAN [Suspect]
  7. DASATINIB [Suspect]
     Indication: CHRONIC MYELOID LEUKAEMIA

REACTIONS (7)
  - Platelet count decreased [Recovered/Resolved]
  - Lipase increased [Recovered/Resolved]
  - Graft versus host disease [Recovered/Resolved]
  - Histiocytosis haematophagic [Recovered/Resolved]
  - Malignant neoplasm progression [Unknown]
  - Drug intolerance [Unknown]
  - Drug resistance [Unknown]
